FAERS Safety Report 8034741 (Version 3)
Quarter: 2013Q2

REPORT INFORMATION
  Report Type: Report from Study
  Country: MX (occurrence: MX)
  Receive Date: 20110714
  Receipt Date: 20130606
  Transmission Date: 20140414
  Serious: Yes (Hospitalization)
  Sender: FDA-Public Use
  Company Number: PHHY2011MX60307

PATIENT
  Age: 78 Year
  Sex: Female

DRUGS (2)
  1. ACLASTA [Suspect]
     Indication: OSTEOPOROSIS
     Dosage: 5 MG/100 ML YEARLY
     Route: 042
     Dates: start: 201102
  2. ACLASTA [Suspect]
     Dosage: 5 MG/100 ML YEARLY
     Route: 042
     Dates: start: 201204

REACTIONS (5)
  - Meniscus injury [Unknown]
  - Arthropathy [Unknown]
  - Feeling abnormal [Recovered/Resolved]
  - Headache [Unknown]
  - Dizziness [Unknown]
